FAERS Safety Report 20244053 (Version 1)
Quarter: 2021Q4

REPORT INFORMATION
  Report Type: Spontaneous
  Country: IT (occurrence: IT)
  Receive Date: 20211228
  Receipt Date: 20211228
  Transmission Date: 20220303
  Serious: Yes (Disabling, Other)
  Sender: FDA-Public Use
  Company Number: IT-ABBVIE-21K-083-4213781-00

PATIENT
  Sex: Male

DRUGS (2)
  1. VALPROATE SODIUM [Suspect]
     Active Substance: VALPROATE SODIUM
     Indication: Panic attack
     Route: 065
     Dates: start: 2011
  2. VALPROATE SODIUM [Suspect]
     Active Substance: VALPROATE SODIUM
     Indication: Bipolar disorder

REACTIONS (5)
  - Erectile dysfunction [Unknown]
  - Androgen deficiency [Unknown]
  - Hyperprolactinaemia [Unknown]
  - Secondary hypogonadism [Unknown]
  - Sexual dysfunction [Unknown]
